FAERS Safety Report 6556461-5 (Version None)
Quarter: 2010Q1

REPORT INFORMATION
  Report Type: 
  Country: None (occurrence: None)
  Receive Date: 20100128
  Receipt Date: 20100119
  Transmission Date: 20100710
  Serious: Yes (Other)
  Sender: FDA-Public Use
  Company Number: B0629267A

PATIENT
  Sex: Female

DRUGS (2)
  1. ALLI [Suspect]
  2. RAMIPRIL [Concomitant]

REACTIONS (1)
  - HEPATIC ENZYME INCREASED [None]
